FAERS Safety Report 9286555 (Version 3)
Quarter: 2013Q4

REPORT INFORMATION
  Report Type: Spontaneous
  Country: US (occurrence: US)
  Receive Date: 20130513
  Receipt Date: 20131126
  Transmission Date: 20140711
  Serious: Yes (Death, Hospitalization)
  Sender: FDA-Public Use
  Company Number: US-B.I. PHARMACEUTICALS,INC./RIDGEFIELD-2013-BI-13184BP

PATIENT
  Sex: Female
  Weight: 46.72 kg

DRUGS (8)
  1. PRADAXA [Suspect]
     Indication: ATRIAL FIBRILLATION
     Dates: start: 20120119, end: 20120319
  2. MULTIVITAMINS [Concomitant]
  3. MELOXICAM [Concomitant]
     Dosage: 7.5 MG
  4. CITALOPRAM [Concomitant]
     Dosage: 10 MG
  5. FAMOTIDINE [Concomitant]
  6. PEPCID [Concomitant]
     Dosage: 20 MG
  7. ISORDIL [Concomitant]
     Dosage: 60 MG
  8. BUMEX [Concomitant]
     Dosage: 60 MG
     Route: 048

REACTIONS (3)
  - Gastrointestinal haemorrhage [Fatal]
  - Anaemia [Fatal]
  - Hypoprothrombinaemia [Unknown]
